FAERS Safety Report 12156692 (Version 1)
Quarter: 2016Q1

REPORT INFORMATION
  Report Type: Spontaneous
  Country: CH (occurrence: CH)
  Receive Date: 20160307
  Receipt Date: 20160307
  Transmission Date: 20160526
  Serious: Yes (Other)
  Sender: FDA-Public Use
  Company Number: PHHY2016CH029423

PATIENT
  Age: 31 Year
  Sex: Female

DRUGS (3)
  1. VOLTAREN [Suspect]
     Active Substance: DICLOFENAC SODIUM
     Indication: PAIN
     Dosage: UNK
     Route: 048
  2. NOVALGIN [Suspect]
     Active Substance: METAMIZOLE SODIUM
     Indication: PAIN
     Route: 048
  3. OXYNORM [Suspect]
     Active Substance: OXYCODONE HYDROCHLORIDE
     Indication: PAIN
     Route: 048

REACTIONS (4)
  - Speech disorder [Unknown]
  - Lip swelling [Unknown]
  - Hyporeflexia [Unknown]
  - Hypotonia [Unknown]

NARRATIVE: CASE EVENT DATE: 20160124
